FAERS Safety Report 21519394 (Version 1)
Quarter: 2022Q4

REPORT INFORMATION
  Report Type: Spontaneous
  Country: US (occurrence: None)
  Receive Date: 20221028
  Receipt Date: 20221028
  Transmission Date: 20230113
  Serious: No
  Sender: FDA-Public Use
  Company Number: 2022A350436

PATIENT

DRUGS (1)
  1. BYDUREON BCISE [Suspect]
     Active Substance: EXENATIDE
     Dosage: 2.0MG UNKNOWN
     Route: 058

REACTIONS (7)
  - Blood glucose increased [Unknown]
  - Malaise [Unknown]
  - Bed rest [Unknown]
  - Fatigue [Unknown]
  - Influenza [Unknown]
  - Wrong technique in product usage process [Unknown]
  - Product dose omission issue [Unknown]
